FAERS Safety Report 8166890-4 (Version None)
Quarter: 2012Q1

REPORT INFORMATION
  Report Type: 
  Country: None (occurrence: None)
  Receive Date: 20120227
  Receipt Date: 20120221
  Transmission Date: 20120608
  Serious: Yes (Other)
  Sender: FDA-Public Use
  Company Number: US-ROCHE-1042035

PATIENT
  Sex: Female

DRUGS (2)
  1. BONIVA [Suspect]
     Indication: OSTEOPOROSIS
     Dates: start: 20060601, end: 20100501
  2. FOSAMAX [Suspect]
     Indication: OSTEOPOROSIS
     Dates: start: 20010101, end: 20060501

REACTIONS (4)
  - LOW TURNOVER OSTEOPATHY [None]
  - STRESS FRACTURE [None]
  - ANXIETY [None]
  - EMOTIONAL DISTRESS [None]
